FAERS Safety Report 24869430 (Version 3)
Quarter: 2025Q1

REPORT INFORMATION
  Report Type: Spontaneous
  Country: CA (occurrence: CA)
  Receive Date: 20250121
  Receipt Date: 20250311
  Transmission Date: 20250409
  Serious: No
  Sender: PFIZER
  Company Number: CA-PFIZER INC-202500007700

PATIENT
  Age: 73 Year
  Sex: Male

DRUGS (1)
  1. FRAGMIN [Suspect]
     Active Substance: DALTEPARIN SODIUM

REACTIONS (3)
  - Injection site pain [Unknown]
  - Device defective [Unknown]
  - Product packaging issue [Unknown]
